FAERS Safety Report 7102651 (Version 18)
Quarter: 2013Q3

REPORT INFORMATION
  Report Type: Report from Study
  Country: CA (occurrence: CA)
  Receive Date: 20090901
  Receipt Date: 20130911
  Transmission Date: 20140515
  Serious: Yes (Hospitalization, Other)
  Sender: FDA-Public Use
  Company Number: CA-ROCHE-GNE276727

PATIENT
  Sex: Female
  Weight: 36.04 kg

DRUGS (14)
  1. XOLAIR [Suspect]
     Indication: ASTHMA
     Dosage: 375 MG, Q2W
     Route: 058
     Dates: start: 20081118
  2. XOLAIR [Suspect]
     Dosage: 375 MG, Q2W
     Route: 058
     Dates: start: 20091130
  3. XOLAIR [Suspect]
     Dosage: 375 MG, Q2W
     Route: 058
     Dates: start: 20091214
  4. XOLAIR [Suspect]
     Dosage: 375 MG, Q2W
     Route: 058
     Dates: start: 20091228
  5. XOLAIR [Suspect]
     Dosage: 375 MG, Q2W
     Route: 058
     Dates: start: 20100222
  6. XOLAIR [Suspect]
     Dosage: 375 MG, Q2W
     Route: 058
     Dates: start: 20100308
  7. XOLAIR [Suspect]
     Route: 058
     Dates: start: 20120627
  8. SYNTHROID [Concomitant]
     Indication: PRODUCT USED FOR UNKNOWN INDICATION
     Route: 065
  9. BUDESONIDE [Concomitant]
     Indication: PRODUCT USED FOR UNKNOWN INDICATION
     Route: 065
  10. FORMOTEROL FUMARATE [Concomitant]
     Indication: PRODUCT USED FOR UNKNOWN INDICATION
     Route: 065
  11. ALVESCO [Concomitant]
     Indication: PRODUCT USED FOR UNKNOWN INDICATION
     Route: 065
  12. SINGULAIR [Concomitant]
     Indication: PRODUCT USED FOR UNKNOWN INDICATION
     Route: 065
  13. SYMBICORT [Concomitant]
     Indication: PRODUCT USED FOR UNKNOWN INDICATION
     Route: 065
  14. NASONEX [Concomitant]
     Indication: PRODUCT USED FOR UNKNOWN INDICATION
     Route: 065

REACTIONS (29)
  - Bronchitis [Unknown]
  - Ecchymosis [Not Recovered/Not Resolved]
  - Fatigue [Unknown]
  - Asthma [Unknown]
  - Migraine [Unknown]
  - Muscle spasms [Recovered/Resolved]
  - Pain [Unknown]
  - Pulmonary congestion [Unknown]
  - Photophobia [Unknown]
  - Myalgia [Recovered/Resolved]
  - Nausea [Unknown]
  - Blood pressure decreased [Unknown]
  - Headache [Unknown]
  - Pulmonary function test abnormal [Unknown]
  - Dysphonia [Unknown]
  - Paraesthesia [Unknown]
  - Back pain [Unknown]
  - Oedema peripheral [Unknown]
  - Productive cough [Unknown]
  - Bone pain [Unknown]
  - Hypoaesthesia [Unknown]
  - Burning sensation [Unknown]
  - Arthralgia [Unknown]
  - Haematoma [Unknown]
  - Malaise [Unknown]
  - Cough [Unknown]
  - Pyrexia [Unknown]
  - Sinusitis [Unknown]
  - Pneumonia [Unknown]
